FAERS Safety Report 6252981-1 (Version None)
Quarter: 2009Q2

REPORT INFORMATION
  Report Type: 
  Country: None (occurrence: None)
  Receive Date: 20090629
  Receipt Date: 20090629
  Transmission Date: 20091009
  Serious: Yes (Other)
  Sender: FDA-Public Use
  Company Number: None

PATIENT
  Age: 52 Year
  Sex: Female
  Weight: 83.0083 kg

DRUGS (5)
  1. BUPROPION HCL [Suspect]
     Indication: ANXIETY
     Dosage: 300MG DAILY PO
     Route: 048
     Dates: start: 20090515, end: 20090609
  2. BUPROPION HCL [Suspect]
     Indication: DEPRESSION
     Dosage: 300MG DAILY PO
     Route: 048
     Dates: start: 20090515, end: 20090609
  3. SINGULAIR [Concomitant]
  4. COLACE [Concomitant]
  5. ALIGN [Concomitant]

REACTIONS (4)
  - ANXIETY [None]
  - DEPRESSION [None]
  - PRODUCT SUBSTITUTION ISSUE [None]
  - TREMOR [None]
